FAERS Safety Report 9552764 (Version 2)
Quarter: 2013Q3

REPORT INFORMATION
  Report Type: Spontaneous
  Country: US (occurrence: None)
  Receive Date: 20130916
  Receipt Date: 20130919
  Transmission Date: 20140515
  Serious: Yes (Other)
  Sender: FDA-Public Use
  Company Number: 2013037853

PATIENT
  Age: 69 Year
  Sex: Female
  Weight: 65.32 kg

DRUGS (8)
  1. HIZENTRA (IMMUNOGLOBULIN HUMAN NORMAL) [Suspect]
     Indication: IMMUNODEFICIENCY COMMON VARIABLE
     Dosage: 6 GM 1X/WEEK SUBCUTANEOS
     Route: 058
     Dates: start: 20101124
  2. TESTOSTERONE [Suspect]
     Route: 061
  3. STANDARD MG DISODIUM EDTA THERAPY INFUSION (ALL OTHER THERAPEUTIC PRODUCTS) [Concomitant]
  4. SUPER BOOSTER NUTRIENT IV (MULTIVITAMIN AND MINERAL SUPPLEMENT) [Concomitant]
  5. MEGA MINERAL (MINERAL SUPPLEMENTS) [Concomitant]
  6. PROTEIN DRINK (PROTEIN SUPPLEMENTS) [Concomitant]
  7. IMMUNE BOOSTER (ASCORBIC ACID) [Concomitant]
  8. GLUTATHIONE (GLUTATHIONE) [Concomitant]

REACTIONS (3)
  - Blood alkaline phosphatase increased [None]
  - Alanine aminotransferase increased [None]
  - Aspartate aminotransferase increased [None]
